FAERS Safety Report 15067987 (Version 1)
Quarter: 2018Q2

REPORT INFORMATION
  Report Type: Report from Study
  Country: US (occurrence: US)
  Receive Date: 20180626
  Receipt Date: 20180626
  Transmission Date: 20180711
  Serious: Yes (Other)
  Sender: FDA-Public Use
  Company Number: US-AMGEN-USASL2018083559

PATIENT
  Age: 63 Year
  Sex: Female

DRUGS (1)
  1. REPATHA [Suspect]
     Active Substance: EVOLOCUMAB
     Indication: HYPERCHOLESTEROLAEMIA
     Dosage: 140 MG, Q2WK
     Route: 065

REACTIONS (10)
  - Throat tightness [Unknown]
  - Eye irritation [Unknown]
  - Rash papular [Unknown]
  - Dysphagia [Unknown]
  - Pruritus generalised [Recovering/Resolving]
  - Eye pruritus [Unknown]
  - Hyperhidrosis [Unknown]
  - Pain of skin [Unknown]
  - Stomatitis [Unknown]
  - Burning sensation [Recovering/Resolving]
